FAERS Safety Report 13458761 (Version 2)
Quarter: 2017Q2

REPORT INFORMATION
  Report Type: Spontaneous
  Country: US (occurrence: US)
  Receive Date: 20170419
  Receipt Date: 20170525
  Transmission Date: 20170830
  Serious: No
  Sender: FDA-Public Use
  Company Number: US-009507513-1704USA003852

PATIENT
  Age: 33 Year
  Sex: Female
  Weight: 92.06 kg

DRUGS (1)
  1. NEXPLANON [Suspect]
     Active Substance: ETONOGESTREL
     Dosage: UNK
     Route: 059
     Dates: start: 2013, end: 20161202

REACTIONS (2)
  - Vaginal haemorrhage [Unknown]
  - Vaginal infection [Recovered/Resolved]

NARRATIVE: CASE EVENT DATE: 20161216
